FAERS Safety Report 6644111-9 (Version None)
Quarter: 2010Q1

REPORT INFORMATION
  Report Type: 
  Country: None (occurrence: None)
  Receive Date: 20100322
  Receipt Date: 20100310
  Transmission Date: 20100710
  Serious: Yes (Other)
  Sender: FDA-Public Use
  Company Number: PHBS2008NO00686

PATIENT
  Sex: Female

DRUGS (4)
  1. CARBAMAZEPINE [Suspect]
     Indication: CONVULSION
     Dosage: 1200 MG, QD
     Route: 065
  2. LEVETIRACETAM [Suspect]
     Indication: CONVULSION
     Dosage: 3000 MG, QD
     Route: 065
  3. LEVETIRACETAM [Suspect]
     Dosage: 3500 MG, QD
     Route: 065
  4. TOPIRAMATE [Concomitant]
     Indication: EPILEPSY
     Dosage: 175 MG/DAY

REACTIONS (6)
  - CONVULSION [None]
  - DRUG EXPOSURE DURING PREGNANCY [None]
  - GRAND MAL CONVULSION [None]
  - NORMAL NEWBORN [None]
  - PETIT MAL EPILEPSY [None]
  - SIMPLE PARTIAL SEIZURES [None]
